FAERS Safety Report 8485136-0 (Version None)
Quarter: 2012Q3

REPORT INFORMATION
  Report Type: 
  Country: None (occurrence: None)
  Receive Date: 20120703
  Receipt Date: 20120625
  Transmission Date: 20120928
  Serious: Yes (Other)
  Sender: FDA-Public Use
  Company Number: US-BAYER-2012-063858

PATIENT
  Age: 52 Year
  Sex: Female
  Weight: 67.12 kg

DRUGS (6)
  1. SINGULAIR [Concomitant]
     Dosage: 10 MG, UNK
     Dates: start: 20110907, end: 20120203
  2. CITALOPRAM HYDROBROMIDE [Concomitant]
     Dosage: 20 MG, TAB
     Dates: start: 20110907, end: 20120307
  3. PROAIR HFA [Concomitant]
     Dosage: UNK
     Dates: start: 20120203
  4. YAZ [Suspect]
  5. CONCERTA [Concomitant]
     Dosage: 36 MG, UNK
     Dates: start: 20110908, end: 20120312
  6. DROSPIRENONE AND ETHINYL ESTRADIOL [Suspect]

REACTIONS (1)
  - THROMBOPHLEBITIS SUPERFICIAL [None]
